FAERS Safety Report 7764575-7 (Version None)
Quarter: 2011Q3

REPORT INFORMATION
  Report Type: 
  Country: None (occurrence: None)
  Receive Date: 20110921
  Receipt Date: 20110915
  Transmission Date: 20111222
  Serious: Yes (Hospitalization, Other)
  Sender: FDA-Public Use
  Company Number: JP-PFIZER INC-2011218766

PATIENT
  Age: 75 Year
  Sex: Female
  Weight: 47.4 kg

DRUGS (11)
  1. LYRICA [Suspect]
     Indication: NEUROPATHY PERIPHERAL
     Dosage: 75 MG, 2X/DAY
     Route: 048
     Dates: start: 20110315, end: 20110329
  2. LIPITOR [Concomitant]
     Dosage: UNK
  3. NEUTROGIN [Concomitant]
     Indication: NEUTROPENIA
     Dosage: UNK
  4. AMLODIPINE [Concomitant]
     Dosage: UNK
  5. TEGRETOL [Concomitant]
     Dosage: UNK
     Route: 048
  6. GRANISETRON [Concomitant]
     Indication: PROPHYLAXIS
     Dosage: UNK
     Route: 041
  7. DECADRON [Concomitant]
     Indication: PROPHYLAXIS
     Dosage: UNK
  8. GOSHAJINKIGAN [Concomitant]
     Dosage: UNK
     Route: 048
  9. TEPRENONE [Concomitant]
     Dosage: UNK
     Route: 048
  10. METHYCOBAL [Concomitant]
     Dosage: UNK
     Route: 048
  11. TAXOTERE [Suspect]
     Indication: NON-SMALL CELL LUNG CANCER
     Dosage: 86.28 MG/DAY
     Route: 041
     Dates: start: 20101210, end: 20110420

REACTIONS (3)
  - PYREXIA [None]
  - NEUTROPHIL COUNT DECREASED [None]
  - WHITE BLOOD CELL COUNT DECREASED [None]
